FAERS Safety Report 21306025 (Version 2)
Quarter: 2022Q3

REPORT INFORMATION
  Report Type: Report from Study
  Country: CN (occurrence: CN)
  Receive Date: 20220908
  Receipt Date: 20220916
  Transmission Date: 20221027
  Serious: Yes (Other)
  Sender: FDA-Public Use
  Company Number: CN-BAYER-2022A122606

PATIENT

DRUGS (3)
  1. RIVAROXABAN [Interacting]
     Active Substance: RIVAROXABAN
     Indication: Pulmonary embolism
     Dosage: 15 MG, BID
     Route: 048
  2. RIVAROXABAN [Interacting]
     Active Substance: RIVAROXABAN
     Indication: Pulmonary embolism
     Dosage: 20 MG, QD
     Route: 048
  3. HEPARIN CALCIUM [Interacting]
     Active Substance: HEPARIN CALCIUM
     Indication: Pulmonary embolism
     Dosage: 5000 U, QD
     Route: 030

REACTIONS (2)
  - Mucocutaneous haemorrhage [Unknown]
  - Labelled drug-drug interaction medication error [Unknown]
